FAERS Safety Report 9913110 (Version 3)
Quarter: 2014Q1

REPORT INFORMATION
  Report Type: Spontaneous
  Country: FR (occurrence: None)
  Receive Date: 20140214
  Receipt Date: 20140319
  Transmission Date: 20141002
  Serious: Yes (Other)
  Sender: FDA-Public Use
  Company Number: AXC-2014-000094

PATIENT
  Age: 81 Year
  Sex: Female

DRUGS (4)
  1. PYLERA [Suspect]
     Indication: GASTRITIS
     Route: 048
     Dates: start: 20140116, end: 201401
  2. KEMISTAN (MEFENAMIC ACID0 [Concomitant]
  3. STRESSMAN (STRESSMAN) [Concomitant]
  4. OMPERAZOLE (OMEPRAZOLE) TABLET, 20 MG [Concomitant]

REACTIONS (5)
  - Foreign body [None]
  - Choking [None]
  - Wrong technique in drug usage process [None]
  - Foreign body [None]
  - Dyspnoea [None]
